FAERS Safety Report 12678008 (Version 2)
Quarter: 2016Q4

REPORT INFORMATION
  Report Type: Report from Study
  Country: CA (occurrence: CA)
  Receive Date: 20160823
  Receipt Date: 20161104
  Transmission Date: 20170207
  Serious: Yes (Other)
  Sender: FDA-Public Use
  Company Number: CA-REGENERON PHARMACEUTICALS, INC.-2016-20744

PATIENT

DRUGS (3)
  1. EYLEA [Suspect]
     Active Substance: AFLIBERCEPT
     Indication: DIABETIC RETINAL OEDEMA
     Dosage: BILATERAL, Q1MON
     Route: 031
     Dates: start: 20160711, end: 20160711
  2. EYLEA [Suspect]
     Active Substance: AFLIBERCEPT
     Dosage: BILATERAL, Q1MON
     Route: 031
     Dates: start: 20160719, end: 20160719
  3. EYLEA [Suspect]
     Active Substance: AFLIBERCEPT
     Dosage: INJECTION IN THE LEFT EYE
     Route: 031
     Dates: start: 2016

REACTIONS (5)
  - Vitreous haemorrhage [Not Recovered/Not Resolved]
  - Vitreous floaters [Not Recovered/Not Resolved]
  - Vision blurred [Not Recovered/Not Resolved]
  - Vitreous haemorrhage [Not Recovered/Not Resolved]
  - Visual impairment [Not Recovered/Not Resolved]

NARRATIVE: CASE EVENT DATE: 20160711
